FAERS Safety Report 5339184-X (Version None)
Quarter: 2007Q2

REPORT INFORMATION
  Report Type: 
  Country: None (occurrence: None)
  Receive Date: 20070330
  Receipt Date: 20060419
  Transmission Date: 20071010
  Serious: Yes (Hospitalization)
  Sender: FDA-Public Use
  Company Number: 2006EN000108

PATIENT
  Age: 15 Year
  Sex: Male
  Weight: 70 kg

DRUGS (4)
  1. ONCASPAR [Suspect]
     Indication: LEUKAEMIA
     Dosage: 4524 IU;X;
     Dates: start: 20060101, end: 20060101
  2. ONCASPAR [Suspect]
     Indication: LEUKAEMIA
     Dosage: 4524 IU;X;
     Dates: start: 20060301, end: 20060301
  3. ONCASPAR [Suspect]
     Indication: LEUKAEMIA
     Dosage: 4524 IU;X;
     Dates: start: 20060418, end: 20060418
  4. VINCRISTINE [Concomitant]

REACTIONS (3)
  - HYPERSENSITIVITY [None]
  - RESPIRATORY DISTRESS [None]
  - SWOLLEN TONGUE [None]
